FAERS Safety Report 23621772 (Version 1)
Quarter: 2024Q1

REPORT INFORMATION
  Report Type: Spontaneous
  Country: US (occurrence: None)
  Receive Date: 20240311
  Receipt Date: 20240311
  Transmission Date: 20240410
  Serious: Yes (Other)
  Sender: FDA-Public Use
  Company Number: None

PATIENT
  Age: 69 Year
  Sex: Female

DRUGS (1)
  1. EVENITY [Suspect]
     Active Substance: ROMOSOZUMAB-AQQG
     Indication: Senile osteoporosis
     Dosage: OTHER FREQUENCY : Q4W;?
     Route: 058
     Dates: start: 20240308

REACTIONS (1)
  - Injection site cellulitis [None]

NARRATIVE: CASE EVENT DATE: 20240309
